FAERS Safety Report 21325186 (Version 5)
Quarter: 2022Q4

REPORT INFORMATION
  Report Type: Report from Study
  Country: ES (occurrence: None)
  Receive Date: 20220912
  Receipt Date: 20221205
  Transmission Date: 20230113
  Serious: Yes (Hospitalization)
  Sender: FDA-Public Use
  Company Number: ES-ROCHE-3173980

PATIENT
  Age: 65 Year
  Sex: Male
  Weight: 44 kg

DRUGS (7)
  1. ATEZOLIZUMAB [Suspect]
     Active Substance: ATEZOLIZUMAB
     Indication: Prostate cancer
     Route: 041
     Dates: start: 20220504
  2. ACETAMINOPHEN [Concomitant]
     Active Substance: ACETAMINOPHEN
  3. OMEPRAZOLE [Concomitant]
     Active Substance: OMEPRAZOLE
  4. DECAPEPTYL [Concomitant]
  5. FOLIC ACID [Concomitant]
     Active Substance: FOLIC ACID
  6. CALCIUM [Concomitant]
     Active Substance: CALCIUM
  7. NOLOTIL [Concomitant]

REACTIONS (2)
  - Blood creatinine increased [Recovered/Resolved]
  - Asthenia [Recovered/Resolved]

NARRATIVE: CASE EVENT DATE: 20220825
